FAERS Safety Report 21507999 (Version 2)
Quarter: 2022Q4

REPORT INFORMATION
  Report Type: Report from Study
  Country: MX (occurrence: MX)
  Receive Date: 20221026
  Receipt Date: 20221206
  Transmission Date: 20230112
  Serious: Yes (Other)
  Sender: FDA-Public Use
  Company Number: MX-NOVARTISPH-NVSC2022MX239309

PATIENT
  Sex: Female
  Weight: 75 kg

DRUGS (5)
  1. DIOVAN [Suspect]
     Active Substance: VALSARTAN
     Indication: Blood pressure abnormal
     Dosage: 1 DOSAGE FORM, QD (160 MG) (STARTED 5 YEARS AGO APPROXIMATELY)
     Route: 048
  2. DIOVAN [Suspect]
     Active Substance: VALSARTAN
     Indication: Hypertension
  3. EXFORGE HCT [Suspect]
     Active Substance: AMLODIPINE BESYLATE\HYDROCHLOROTHIAZIDE\VALSARTAN
     Indication: Blood pressure abnormal
     Dosage: 1 DOSAGE FORM, QD (5/160/12.5 MG) (STARTED 6 YEARS AGO APPROXIMATELY)
     Route: 048
  4. EXFORGE HCT [Suspect]
     Active Substance: AMLODIPINE BESYLATE\HYDROCHLOROTHIAZIDE\VALSARTAN
     Indication: Hypertension
  5. HUMALOG [Concomitant]
     Active Substance: INSULIN LISPRO
     Indication: Diabetes mellitus
     Dosage: 41 DOSAGE FORM, BID (25, 100 UI/ML) ( MORNING 25 AND A HALF UNITS, AND 15 AND A HALF UNITS AT NIGHT)
     Route: 065

REACTIONS (6)
  - Dementia [Recovered/Resolved with Sequelae]
  - Deafness [Unknown]
  - Body height decreased [Unknown]
  - Memory impairment [Unknown]
  - Gait disturbance [Unknown]
  - Fat tissue increased [Unknown]
